FAERS Safety Report 9274907 (Version 1)
Quarter: 2013Q2

REPORT INFORMATION
  Report Type: Spontaneous
  Country: US (occurrence: US)
  Receive Date: 20130507
  Receipt Date: 20130507
  Transmission Date: 20140414
  Serious: Yes (Other)
  Sender: FDA-Public Use
  Company Number: US-BAYER-2013-054355

PATIENT
  Sex: Female

DRUGS (1)
  1. MIDOL EXTENDED RELIEF CAPLET [Suspect]
     Dosage: 7 DF, IN 4 HOURS

REACTIONS (8)
  - Intentional overdose [None]
  - Nervous system disorder [None]
  - Drug dependence [None]
  - Suicidal ideation [None]
  - Hypoaesthesia [None]
  - Vomiting [None]
  - Diarrhoea [None]
  - Muscle spasms [None]
